FAERS Safety Report 5580219-7 (Version None)
Quarter: 2008Q1

REPORT INFORMATION
  Report Type: 
  Country: None (occurrence: None)
  Receive Date: 20080103
  Receipt Date: 20071219
  Transmission Date: 20080703
  Serious: Yes (Hospitalization, Other)
  Sender: FDA-Public Use
  Company Number: US-AMGEN-STX251563

PATIENT
  Sex: Female

DRUGS (10)
  1. ENBREL [Suspect]
     Indication: RHEUMATOID ARTHRITIS
     Route: 058
     Dates: start: 20071001, end: 20071101
  2. ENBREL [Suspect]
     Route: 058
     Dates: start: 20071001, end: 20071101
  3. NEURONTIN [Concomitant]
  4. VICODIN [Concomitant]
  5. CYMBALTA [Concomitant]
  6. DIOVAN [Concomitant]
  7. THYROID TAB [Concomitant]
  8. MEDROL [Concomitant]
  9. JANUVIA [Concomitant]
  10. HYDROCHLOROTHIAZIDE [Concomitant]

REACTIONS (3)
  - FOOT FRACTURE [None]
  - LOCALISED INFECTION [None]
  - SKIN ULCER [None]
